FAERS Safety Report 10004696 (Version 1)
Quarter: 2014Q1

REPORT INFORMATION
  Report Type: Spontaneous
  Country: PL (occurrence: PL)
  Receive Date: 20140312
  Receipt Date: 20140312
  Transmission Date: 20141002
  Serious: Yes (Other)
  Sender: FDA-Public Use
  Company Number: PHHY2014PL027596

PATIENT
  Age: 23 Year
  Sex: Male

DRUGS (3)
  1. QUETIAPINE [Suspect]
     Dosage: 500 MG
  2. CITALOPRAM [Interacting]
     Indication: PANIC ATTACK
     Dosage: 10 MG
  3. CITALOPRAM [Interacting]
     Indication: NEGATIVE THOUGHTS

REACTIONS (5)
  - Abnormal behaviour [Recovering/Resolving]
  - Psychomotor hyperactivity [Recovering/Resolving]
  - Irritability [Recovering/Resolving]
  - Tension [Recovering/Resolving]
  - Drug interaction [Unknown]
